FAERS Safety Report 12733533 (Version 2)
Quarter: 2016Q3

REPORT INFORMATION
  Report Type: Spontaneous
  Country: US (occurrence: US)
  Receive Date: 20160912
  Receipt Date: 20160920
  Transmission Date: 20161109
  Serious: Yes (Hospitalization)
  Sender: FDA-Public Use
  Company Number: US-JNJFOC-20160823474

PATIENT
  Age: 55 Year

DRUGS (3)
  1. XARELTO [Suspect]
     Active Substance: RIVAROXABAN
     Indication: DEEP VEIN THROMBOSIS
     Dosage: 15MG-20MG
     Route: 048
     Dates: start: 20131205, end: 201312
  2. XARELTO [Suspect]
     Active Substance: RIVAROXABAN
     Indication: CEREBROVASCULAR ACCIDENT PROPHYLAXIS
     Dosage: 15MG-20MG
     Route: 048
     Dates: start: 20131205, end: 201312
  3. XARELTO [Suspect]
     Active Substance: RIVAROXABAN
     Indication: ATRIAL FIBRILLATION
     Dosage: 15MG-20MG
     Route: 048
     Dates: start: 20131205, end: 201312

REACTIONS (2)
  - Anaemia [Unknown]
  - Haematoma [Unknown]

NARRATIVE: CASE EVENT DATE: 20131205
